FAERS Safety Report 6042514-7 (Version None)
Quarter: 2009Q1

REPORT INFORMATION
  Report Type: 
  Country: None (occurrence: None)
  Receive Date: 20090116
  Receipt Date: 20080227
  Transmission Date: 20090719
  Serious: Yes (Hospitalization)
  Sender: FDA-Public Use
  Company Number: SE-ABBOTT-09P-150-0498094-00

PATIENT
  Sex: Female

DRUGS (3)
  1. ABBOTICIN [Suspect]
     Indication: PNEUMONIA
     Route: 042
     Dates: start: 20071112, end: 20071112
  2. ZINACEF [Concomitant]
     Indication: PNEUMONIA
  3. AXETIL [Concomitant]
     Indication: DRUG USE FOR UNKNOWN INDICATION

REACTIONS (1)
  - ANGIOEDEMA [None]
